FAERS Safety Report 10057505 (Version 2)
Quarter: 2014Q2

REPORT INFORMATION
  Report Type: Spontaneous
  Country: TR (occurrence: TR)
  Receive Date: 20140403
  Receipt Date: 20140408
  Transmission Date: 20141212
  Serious: No
  Sender: FDA-Public Use
  Company Number: TR-VERTEX PHARMACEUTICALS INC-2014-001760

PATIENT
  Age: 57 Year
  Sex: Male

DRUGS (4)
  1. INCIVO [Suspect]
     Indication: CHRONIC HEPATITIS C
     Dosage: 750 MG, TID
     Route: 048
  2. INCIVO [Suspect]
     Route: 048
  3. RIBAVIRIN [Suspect]
     Indication: CHRONIC HEPATITIS C
     Dosage: 1000 MG, QD
     Route: 048
  4. PEGINTERFERON ALFA [Suspect]
     Indication: CHRONIC HEPATITIS C
     Dosage: 100 ?G, QW
     Route: 058

REACTIONS (1)
  - Rash [Recovered/Resolved]
